FAERS Safety Report 11641024 (Version 1)
Quarter: 2015Q4

REPORT INFORMATION
  Report Type: Spontaneous
  Country: JP (occurrence: JP)
  Receive Date: 20151019
  Receipt Date: 20151019
  Transmission Date: 20160304
  Serious: Yes (Other)
  Sender: FDA-Public Use
  Company Number: JP-ASTELLAS-2015JP020724AA

PATIENT

DRUGS (2)
  1. BETANIS [Suspect]
     Active Substance: MIRABEGRON
     Indication: PRODUCT USED FOR UNKNOWN INDICATION
     Dosage: UNK,UNK, UNKNOWN FREQ.
     Route: 048
  2. ESTRACYT                           /00327002/ [Suspect]
     Active Substance: ESTRAMUSTINE PHOSPHATE SODIUM
     Indication: PRODUCT USED FOR UNKNOWN INDICATION
     Dosage: UNK,UNK, UNKNOWN FREQ.
     Route: 048

REACTIONS (1)
  - Pleural effusion [Unknown]
